FAERS Safety Report 5637763-3 (Version None)
Quarter: 2008Q1

REPORT INFORMATION
  Report Type: 
  Country: None (occurrence: None)
  Receive Date: 20080220
  Receipt Date: 20080204
  Transmission Date: 20080703
  Serious: Yes (Life-Threatening)
  Sender: FDA-Public Use
  Company Number: 2008S1000029

PATIENT
  Age: 45 Year
  Sex: Female
  Weight: 103.8737 kg

DRUGS (1)
  1. INOMAX [Suspect]
     Dosage: 60 PPM; CONT
     Dates: start: 20080204, end: 20080204

REACTIONS (3)
  - MEDICAL DEVICE COMPLICATION [None]
  - OXYGEN SATURATION DECREASED [None]
  - UNDERDOSE [None]
